FAERS Safety Report 5941814-6 (Version None)
Quarter: 2008Q4

REPORT INFORMATION
  Report Type: 
  Country: None (occurrence: None)
  Receive Date: 20081105
  Receipt Date: 20081103
  Transmission Date: 20090506
  Serious: Yes (Life-Threatening, Hospitalization, Other)
  Sender: FDA-Public Use
  Company Number: PHHY2008MX27028

PATIENT
  Age: 32 Year
  Sex: Female

DRUGS (2)
  1. TRILEPTAL [Suspect]
     Indication: EPILEPSY
     Dosage: 300 MG, 3 TABLETS DAILY
     Route: 048
     Dates: start: 20070601
  2. TRILEPTAL [Suspect]
     Dosage: 300 MG
     Route: 048
     Dates: start: 20081001

REACTIONS (4)
  - COMA [None]
  - COMPLICATION OF DELIVERY [None]
  - DRUG EXPOSURE DURING PREGNANCY [None]
  - PRE-ECLAMPSIA [None]
